FAERS Safety Report 7560361-1 (Version None)
Quarter: 2011Q2

REPORT INFORMATION
  Report Type: 
  Country: None (occurrence: None)
  Receive Date: 20110621
  Receipt Date: 20110610
  Transmission Date: 20111010
  Serious: Yes (Death)
  Sender: FDA-Public Use
  Company Number: US-ELI_LILLY_AND_COMPANY-US201103005035

PATIENT
  Sex: Male
  Weight: 87.075 kg

DRUGS (28)
  1. FORTEO [Suspect]
     Dosage: UNK, QD
  2. SULFASALAZINE [Concomitant]
     Dosage: 2 DF, TID
     Dates: start: 20090911
  3. SULFASALAZINE [Concomitant]
     Dosage: 500 MG, QD
     Dates: start: 20090420
  4. AZATHIOPRIN [Concomitant]
     Dosage: 50 MG, QD
     Dates: start: 20090420
  5. CLONAZEPAM [Concomitant]
     Dosage: 0.5 MG, QD
     Dates: start: 20090911
  6. PERCOCET [Concomitant]
     Indication: PAIN
     Dosage: 1 DF, PRN
     Route: 048
     Dates: start: 20090914
  7. HYDROCODONE BITARTRATE AND ACETAMINOPHEN [Concomitant]
     Dosage: 1 DF, PRN
     Dates: start: 20091022, end: 20091105
  8. FORTEO [Suspect]
     Indication: OSTEOPOROSIS
     Dosage: UNK, QD
     Route: 058
     Dates: start: 20090521
  9. HYDROCODONE [Concomitant]
     Dosage: 1 DF, TID
     Dates: start: 20090420
  10. HYDROCODONE [Concomitant]
     Dosage: 1 DF, PRN
     Route: 048
     Dates: start: 20090507, end: 20090803
  11. CYMBALTA [Concomitant]
     Dosage: 30 MG, QD
     Dates: start: 20090911
  12. LOMOTIL [Concomitant]
     Dosage: UNK, PRN
     Dates: start: 20090911
  13. NORTRIPTYLINE HCL [Concomitant]
     Dosage: 10 MG, QD
     Dates: start: 20090420, end: 20090911
  14. PLAVIX [Concomitant]
     Dosage: 75 MG, QD
     Dates: start: 20090420, end: 20090911
  15. EFFEXOR [Concomitant]
     Dosage: 75 MG, TID
     Dates: start: 20090420, end: 20090911
  16. FLEXERIL [Concomitant]
     Dosage: 10 MG, TID
     Route: 048
     Dates: start: 20090610
  17. CELEBREX [Concomitant]
     Dosage: 200 MG, QD
     Dates: start: 20090911, end: 20100510
  18. LODINE XL [Concomitant]
     Dosage: 400 MG, QD
     Dates: start: 20100510
  19. AMITRIPTYLINE HCL [Concomitant]
     Dosage: 75 MG, EACH EVENING
     Dates: start: 20090911
  20. FLEXERIL [Concomitant]
     Dosage: 10 MG, BID
     Route: 048
     Dates: start: 20090911
  21. FOLIC ACID [Concomitant]
     Dosage: 1 MG, QD
     Dates: start: 20090911
  22. AMITRIPTYLINE HCL [Concomitant]
     Dosage: 10 MG, QD
     Dates: start: 20090420
  23. OPANA [Concomitant]
     Dosage: 20 MG, BID
     Dates: start: 20090803, end: 20090914
  24. DOXEPIN [Concomitant]
     Dosage: 10 MG, QD
     Dates: start: 20090420
  25. IMURAN [Concomitant]
     Dosage: 2 DF, QD
     Dates: start: 20090911
  26. NADOLOL [Concomitant]
     Dosage: 40 MG, QD
     Dates: start: 20090420, end: 20090911
  27. PROTONIX [Concomitant]
     Dosage: 40 MG, QD
     Dates: start: 20090420
  28. FLEXERIL [Concomitant]
     Dosage: 10 MG, QD
     Route: 048
     Dates: start: 20090911

REACTIONS (3)
  - KNEE OPERATION [None]
  - DEATH [None]
  - MUSCULAR WEAKNESS [None]
